FAERS Safety Report 7690221-7 (Version None)
Quarter: 2011Q3

REPORT INFORMATION
  Report Type: 
  Country: None (occurrence: None)
  Receive Date: 20110818
  Receipt Date: 20110804
  Transmission Date: 20111222
  Serious: Yes (Other)
  Sender: FDA-Public Use
  Company Number: PL-RANBAXY-2011RR-46362

PATIENT
  Age: 4 Year
  Sex: Female

DRUGS (3)
  1. CLARITHROMYCIN [Suspect]
     Indication: SINUSITIS
     Dosage: 7.5 MG/KG, BID
     Route: 048
  2. CLARITHROMYCIN [Suspect]
     Indication: PYREXIA
  3. CEFUROXIME [Concomitant]
     Indication: PRODUCT USED FOR UNKNOWN INDICATION
     Dosage: 15 MG/KG, BID
     Route: 065

REACTIONS (1)
  - HYPERSOMNIA [None]
